FAERS Safety Report 15429424 (Version 1)
Quarter: 2018Q3

REPORT INFORMATION
  Report Type: Spontaneous
  Country: US (occurrence: US)
  Receive Date: 20180926
  Receipt Date: 20180926
  Transmission Date: 20181010
  Serious: Yes (Other)
  Sender: FDA-Public Use
  Company Number: US-LUPIN PHARMACEUTICALS INC.-2018-06637

PATIENT
  Age: 64 Year
  Sex: Male
  Weight: 74.83 kg

DRUGS (2)
  1. ZOLPIDEM TARTRATE  SUBLINGUAL TABLETS 3.5 MG [Suspect]
     Active Substance: ZOLPIDEM TARTRATE
     Indication: SLEEP APNOEA SYNDROME
     Dosage: 3.5 MG, ONCE WEEKLY
     Route: 048
  2. ZOLPIDEM TARTRATE  SUBLINGUAL TABLETS 3.5 MG [Suspect]
     Active Substance: ZOLPIDEM TARTRATE
     Indication: MIDDLE INSOMNIA

REACTIONS (4)
  - Ventricular extrasystoles [Not Recovered/Not Resolved]
  - Heart rate increased [Not Recovered/Not Resolved]
  - Product use in unapproved indication [Unknown]
  - Palpitations [Not Recovered/Not Resolved]

NARRATIVE: CASE EVENT DATE: 20180817
